FAERS Safety Report 6628768-4 (Version None)
Quarter: 2010Q1

REPORT INFORMATION
  Report Type: 
  Country: None (occurrence: None)
  Receive Date: 20100311
  Receipt Date: 20100310
  Transmission Date: 20100710
  Serious: Yes (Death, Hospitalization)
  Sender: FDA-Public Use
  Company Number: NL-BAYER-201018427GPV

PATIENT
  Age: 56 Year
  Sex: Male

DRUGS (5)
  1. NEXAVAR [Suspect]
     Indication: HEPATIC NEOPLASM MALIGNANT
     Dosage: TOTAL DAILY DOSE: 800 MG  UNIT DOSE: 200 MG
     Route: 048
     Dates: start: 20100219
  2. MOVICOLON [Concomitant]
     Dosage: 1/3 SACHET PER DAY
     Route: 048
  3. BETAHISTINE [Concomitant]
     Dosage: 2HCL ACCORD 16 MG
  4. HYDROCHLOROTHIAZIDE [Concomitant]
     Dosage: 12.5 MG
     Route: 048
  5. PAROXETINE HCL [Concomitant]
     Dosage: 20 MG
     Route: 048

REACTIONS (6)
  - CARDIOVASCULAR DISORDER [None]
  - DRY MOUTH [None]
  - DYSPNOEA [None]
  - PALMAR-PLANTAR ERYTHRODYSAESTHESIA SYNDROME [None]
  - PNEUMONIA [None]
  - PYREXIA [None]
